FAERS Safety Report 23802361 (Version 1)
Quarter: 2024Q2

REPORT INFORMATION
  Report Type: Spontaneous
  Country: UA (occurrence: None)
  Receive Date: 20240501
  Receipt Date: 20240501
  Transmission Date: 20240717
  Serious: Yes (Life-Threatening)
  Sender: FDA-Public Use
  Company Number: 2024A100739

PATIENT
  Age: 45 Year
  Sex: Female
  Weight: 70 kg

DRUGS (1)
  1. BRILINTA [Suspect]
     Active Substance: TICAGRELOR
     Indication: Aneurysm
     Route: 048
     Dates: start: 20240418, end: 20240425

REACTIONS (2)
  - Vascular stent thrombosis [Recovered/Resolved with Sequelae]
  - Hemiplegia [Recovered/Resolved with Sequelae]

NARRATIVE: CASE EVENT DATE: 20240425
